FAERS Safety Report 7516847-9 (Version None)
Quarter: 2011Q2

REPORT INFORMATION
  Report Type: 
  Country: None (occurrence: None)
  Receive Date: 20110523
  Receipt Date: 20110510
  Transmission Date: 20111010
  Serious: Yes (Hospitalization)
  Sender: FDA-Public Use
  Company Number: ACO_22765_2011

PATIENT
  Age: 61 Year
  Sex: Female

DRUGS (7)
  1. ZOCOR [Concomitant]
  2. AMPYRA [Suspect]
     Indication: PRODUCT USED FOR UNKNOWN INDICATION
     Dosage: 10 MG, Q 12 HRS
     Dates: start: 20101130, end: 20110328
  3. XANAX [Concomitant]
  4. TYSABRI [Concomitant]
  5. BACLOFEN [Concomitant]
  6. AMANTADINE HCL [Concomitant]
  7. FOSAMAX [Concomitant]

REACTIONS (2)
  - BLOOD PRESSURE DECREASED [None]
  - SYNCOPE [None]
